APPROVED DRUG PRODUCT: IBUPROFEN AND FAMOTIDINE
Active Ingredient: FAMOTIDINE; IBUPROFEN
Strength: 26.6MG;800MG
Dosage Form/Route: TABLET;ORAL
Application: A218684 | Product #001 | TE Code: AB
Applicant: ZYDUS PHARMACEUTICALS USA INC
Approved: Feb 20, 2025 | RLD: No | RS: No | Type: RX